FAERS Safety Report 5285181-2 (Version None)
Quarter: 2007Q2

REPORT INFORMATION
  Report Type: 
  Country: None (occurrence: None)
  Receive Date: 20070403
  Receipt Date: 20070322
  Transmission Date: 20071010
  Serious: Yes (Other)
  Sender: FDA-Public Use
  Company Number: JP-PFIZER INC-2007015461

PATIENT
  Age: 90 Year
  Sex: Female

DRUGS (1)
  1. HALCION [Suspect]
     Dosage: DAILY DOSE:.5MG
     Route: 048

REACTIONS (2)
  - ABNORMAL BEHAVIOUR [None]
  - DEMENTIA [None]
